FAERS Safety Report 4311694-3 (Version None)
Quarter: 2004Q1

REPORT INFORMATION
  Report Type: 
  Country: None (occurrence: None)
  Receive Date: 20040303
  Receipt Date: 20040303
  Transmission Date: 20041129
  Serious: Yes (Hospitalization)
  Sender: FDA-Public Use
  Company Number: None

PATIENT
  Age: 73 Year
  Sex: Male
  Weight: 83.6 kg

DRUGS (1)
  1. PIPERCILLIN/TAZOBACTAM [Suspect]
     Indication: DIABETIC FOOT
     Dosage: 2.25G IV Q 6 HOURS
     Route: 042
     Dates: start: 20031215, end: 20031217

REACTIONS (1)
  - RENAL FAILURE ACUTE [None]
